FAERS Safety Report 9148823 (Version 1)
Quarter: 2013Q1

REPORT INFORMATION
  Report Type: Spontaneous
  Country: US (occurrence: None)
  Receive Date: 20130227
  Receipt Date: 20130227
  Transmission Date: 20140127
  Serious: Yes (Life-Threatening, Hospitalization, Disabling)
  Sender: FDA-Public Use
  Company Number: None

PATIENT
  Age: 32 Year
  Sex: Female
  Weight: 54.43 kg

DRUGS (1)
  1. VYVANSE [Suspect]
     Dosage: 60MG 1 PILL IN MORNING PO
     Route: 048
     Dates: start: 20121205, end: 20130107

REACTIONS (5)
  - Micturition urgency [None]
  - Urinary tract infection [None]
  - Blood urine present [None]
  - Bladder disorder [None]
  - Dysuria [None]
